FAERS Safety Report 7171082-1 (Version None)
Quarter: 2010Q4

REPORT INFORMATION
  Report Type: 
  Country: None (occurrence: None)
  Receive Date: 20101207
  Receipt Date: 20101122
  Transmission Date: 20110411
  Serious: Yes (Death, Other)
  Sender: FDA-Public Use
  Company Number: 011143

PATIENT
  Age: 49 Year
  Sex: Male

DRUGS (1)
  1. SAMSCA [Suspect]
     Indication: HYPONATRAEMIA
     Dosage: 15 MG, ORAL
     Route: 048
     Dates: start: 20100907, end: 20100912

REACTIONS (3)
  - DISEASE PROGRESSION [None]
  - HEPATIC CIRRHOSIS [None]
  - HYPERKALAEMIA [None]
